FAERS Safety Report 6987635-7 (Version None)
Quarter: 2010Q3

REPORT INFORMATION
  Report Type: 
  Country: None (occurrence: None)
  Receive Date: 20100916
  Receipt Date: 20100907
  Transmission Date: 20110219
  Serious: Yes (Hospitalization, Other)
  Sender: FDA-Public Use
  Company Number: IL-NOVOPROD-314398

PATIENT
  Age: 73 Year
  Sex: Female

DRUGS (3)
  1. NOVOMIX 30 FLEXPEN [Suspect]
     Indication: DIABETES MELLITUS
     Dosage: 37+34 IU
     Dates: start: 20100809
  2. PLAVIX [Concomitant]
     Dosage: UNK
  3. GLUCOPHAGE [Concomitant]
     Dosage: UNK

REACTIONS (4)
  - APHASIA [None]
  - BLOOD GLUCOSE DECREASED [None]
  - DYSPHEMIA [None]
  - SYNCOPE [None]
